FAERS Safety Report 15360915 (Version 1)
Quarter: 2018Q3

REPORT INFORMATION
  Report Type: Report from Study
  Country: US (occurrence: US)
  Receive Date: 20180907
  Receipt Date: 20180907
  Transmission Date: 20181010
  Serious: Yes (Hospitalization, Other)
  Sender: FDA-Public Use
  Company Number: US-BAYER-2018-098908

PATIENT
  Age: 73 Year
  Sex: Female

DRUGS (27)
  1. LISINOPRIL. [Concomitant]
     Active Substance: LISINOPRIL
     Dosage: 5 MG DAILY
     Route: 048
  2. GLUCOSAMINE [Concomitant]
     Active Substance: GLUCOSAMINE
  3. CALCIUM W/VITAMIN D NOS [Concomitant]
     Active Substance: CALCIUM\VITAMIN D
     Dosage: 600 MG?125 TABLET TAKE 1 PO DAILY
  4. MIRALAX [Concomitant]
     Active Substance: POLYETHYLENE GLYCOL 3350
     Dosage: 17 MG, TID
  5. TYLENOL [Concomitant]
     Active Substance: ACETAMINOPHEN
  6. HYDROCODONE W/ACETAMINOPHEN [Concomitant]
     Active Substance: ACETAMINOPHEN\HYDROCODONE BITARTRATE
     Dosage: 5 MG?325 MG
  7. STIVARGA [Suspect]
     Active Substance: REGORAFENIB
     Indication: RECTAL CANCER
     Dosage: UNK
     Dates: start: 20180515, end: 20180530
  8. DEXAMETHASONE. [Concomitant]
     Active Substance: DEXAMETHASONE
     Dosage: 4 MG THREE TABLETS 12HRS
  9. LANSOPRAZOLE. [Concomitant]
     Active Substance: LANSOPRAZOLE
     Dosage: 30 MG DAILY
  10. LORAZEPAM. [Concomitant]
     Active Substance: LORAZEPAM
     Dosage: 0.5 MG
  11. METFORMIN HCL [Concomitant]
     Active Substance: METFORMIN HYDROCHLORIDE
     Dosage: 500 MG, BID
     Route: 048
  12. CRANBERRY. [Concomitant]
     Active Substance: CRANBERRY
     Dosage: 100?3?140 DAILY
  13. CHONDROITIN [Concomitant]
     Active Substance: CHONDROITIN
     Dosage: 375?300 DAILY
  14. PEPCID [Concomitant]
     Active Substance: FAMOTIDINE
     Dosage: 40 MG, BID
  15. FOLFOX [Concomitant]
     Active Substance: FLUOROURACIL\LEUCOVORIN CALCIUM\OXALIPLATIN
     Dosage: UNK
     Dates: start: 20180626
  16. BACTROBAN [Concomitant]
     Active Substance: MUPIROCIN\MUPIROCIN CALCIUM
     Dosage: 2 % CREAM (GRAM) TAKE 1 APPLICATION TOPICAL TID
  17. CLARITIN [Concomitant]
     Active Substance: LORATADINE
     Dosage: 10 MG DAILY
     Route: 048
  18. MAGNESIUM OXIDE. [Concomitant]
     Active Substance: MAGNESIUM OXIDE
     Dosage: 400 MG, BID
  19. MIRTAZAPINE. [Concomitant]
     Active Substance: MIRTAZAPINE
     Dosage: 30 MG DAILY
  20. AVASTIN [Concomitant]
     Active Substance: BEVACIZUMAB
  21. LUTEIN [Concomitant]
     Active Substance: LUTEIN
     Dosage: 15MG?0.7MG
     Route: 048
  22. BENZONATATE. [Concomitant]
     Active Substance: BENZONATATE
     Dosage: 100 MG, TID
     Route: 048
  23. DIPHENHYDRAMINE HYDROCHLORIDE. [Concomitant]
     Active Substance: DIPHENHYDRAMINE HYDROCHLORIDE
     Dosage: 50 MG, BID
  24. FLONASE [Concomitant]
     Active Substance: FLUTICASONE PROPIONATE
     Dosage: 50 MEG SPRAY
  25. NYSTATIN. [Concomitant]
     Active Substance: NYSTATIN
     Dosage: 5 ML
  26. VITAMIN C [Concomitant]
     Active Substance: ASCORBIC ACID
     Dosage: 1000 MG DAILY
     Route: 048
  27. NEUPOGEN [Concomitant]
     Active Substance: FILGRASTIM

REACTIONS (29)
  - Thrombocytopenia [None]
  - Weight decreased [None]
  - Depression [None]
  - Hypomagnesaemia [None]
  - Iron deficiency anaemia [None]
  - Hypergammaglobulinaemia [None]
  - Skin exfoliation [None]
  - Body temperature increased [None]
  - Nausea [None]
  - Haematuria [None]
  - Vomiting [None]
  - Liver function test increased [None]
  - Blood alkaline phosphatase increased [None]
  - Metastases to pelvis [None]
  - Metastases to liver [None]
  - Haematochezia [None]
  - Urticaria [None]
  - Appetite disorder [None]
  - Generalised erythema [None]
  - Pulmonary mass [None]
  - Platelet count decreased [None]
  - Fatigue [None]
  - Skin exfoliation [Recovering/Resolving]
  - Arthralgia [Not Recovered/Not Resolved]
  - Insomnia [None]
  - Rash [None]
  - Abdominal pain upper [Recovered/Resolved]
  - Dyspnoea [None]
  - Aspartate aminotransferase increased [None]

NARRATIVE: CASE EVENT DATE: 20180520
